FAERS Safety Report 6768384-7 (Version None)
Quarter: 2010Q2

REPORT INFORMATION
  Report Type: 
  Country: None (occurrence: None)
  Receive Date: 20100614
  Receipt Date: 20100526
  Transmission Date: 20101027
  Serious: Yes (Death, Other)
  Sender: FDA-Public Use
  Company Number: PHHY2010JP25565

PATIENT
  Sex: Female
  Weight: 60 kg

DRUGS (7)
  1. ICL670A ICL+DISTAB [Suspect]
     Indication: IRON OVERLOAD
     Dosage: 750 MG DAILY
     Route: 048
     Dates: start: 20090204
  2. PRIMOBOLAN [Concomitant]
     Indication: APLASTIC ANAEMIA
     Dosage: 15MG
     Route: 048
     Dates: start: 20060711, end: 20090314
  3. MICARDIS [Concomitant]
     Dosage: 40 MG
     Route: 048
     Dates: start: 20000912, end: 20090314
  4. NORVASC [Concomitant]
     Dosage: 5 MG
     Route: 048
     Dates: start: 20000912, end: 20090314
  5. PRERAN [Concomitant]
     Dosage: 1 MG
     Route: 048
     Dates: start: 20000912, end: 20090314
  6. SELBEX [Concomitant]
     Dosage: 50 MG
     Route: 048
     Dates: start: 20000912, end: 20090314
  7. JUVELA [Concomitant]
     Dosage: 150 MG
     Dates: start: 20000912, end: 20090314

REACTIONS (3)
  - CEREBRAL HAEMORRHAGE TRAUMATIC [None]
  - DISEASE PROGRESSION [None]
  - FALL [None]
